FAERS Safety Report 23796733 (Version 2)
Quarter: 2024Q2

REPORT INFORMATION
  Report Type: Report from Study
  Country: CA (occurrence: CA)
  Receive Date: 20240430
  Receipt Date: 20240503
  Transmission Date: 20240716
  Serious: Yes (Life-Threatening, Hospitalization, Other)
  Sender: FDA-Public Use
  Company Number: CA-CELLTRION INC.-2024CA009663

PATIENT

DRUGS (12)
  1. TRUXIMA [Suspect]
     Active Substance: RITUXIMAB-ABBS
     Indication: Pemphigus
     Dosage: 1000 MG (DAY 1,15)
     Route: 042
     Dates: start: 20240411
  2. TRUXIMA [Suspect]
     Active Substance: RITUXIMAB-ABBS
     Dosage: 1000 MG; INF#2
     Route: 042
     Dates: start: 20240411
  3. ASPIRIN [Concomitant]
     Active Substance: ASPIRIN
     Indication: Anticoagulant therapy
     Dosage: 1 TAB ONCE DAILY
  4. VIT D [VITAMIN D NOS] [Concomitant]
     Dosage: 3 TABS DAILY
  5. METFORMIN [Concomitant]
     Active Substance: METFORMIN HYDROCHLORIDE
     Indication: Diabetes mellitus
     Dosage: 1 TAB IN THE EVENING
  6. ATORVASTATIN [Concomitant]
     Active Substance: ATORVASTATIN
     Indication: Blood cholesterol
     Dosage: 1 TAB ONCE DAILY AT NIGHT
  7. BISOPROLOL [Concomitant]
     Active Substance: BISOPROLOL\BISOPROLOL FUMARATE
     Indication: Blood pressure measurement
     Dosage: 1 TAB ONCE DAILY
  8. PREDNISONE [Concomitant]
     Active Substance: PREDNISONE
     Indication: Blood pressure measurement
     Dosage: 35MG ONCE DAILY IN THE EVENING (STEROID)
  9. PANTOPRAZOLE [Concomitant]
     Active Substance: PANTOPRAZOLE
     Indication: Gastrooesophageal reflux disease
     Dosage: 1 TAB ONCE DAILY IN THE EVENING
  10. ACETAMINOPHEN [Concomitant]
     Active Substance: ACETAMINOPHEN
     Indication: Premedication
     Dosage: ADMINISTERED CRUSHED WITH WATER AND THROUGH THE NASOGASTRIC TUBE SINCE PT IS NPO
  11. DIPHENHYDRAMINE [Concomitant]
     Active Substance: DIPHENHYDRAMINE
     Indication: Premedication
     Dosage: UNK
  12. METHYLPREDNISOLONE [Concomitant]
     Active Substance: METHYLPREDNISOLONE
     Indication: Premedication
     Dosage: UNK

REACTIONS (1)
  - Hyperglycaemic hyperosmolar nonketotic syndrome [Unknown]
